FAERS Safety Report 4919780-1 (Version None)
Quarter: 2006Q1

REPORT INFORMATION
  Report Type: 
  Country: None (occurrence: None)
  Receive Date: 20060216
  Receipt Date: 20060131
  Transmission Date: 20060701
  Serious: Yes (Hospitalization)
  Sender: FDA-Public Use
  Company Number: 222058

PATIENT
  Age: 73 Year
  Weight: 50 kg

DRUGS (8)
  1. AVASTIN [Suspect]
     Indication: COLORECTAL CANCER METASTATIC
     Dosage: 430 MG, Q3W, INTRAVENOUS
     Route: 042
     Dates: start: 20050824
  2. OXALIPLATIN(OXALIPLATIN) [Suspect]
     Indication: COLORECTAL CANCER METASTATIC
     Dosage: 200 MG, Q3W, INTRAVENOUS
     Route: 042
     Dates: start: 20050824
  3. CAPECITABINE(CAPECITABINE) [Suspect]
     Indication: COLORECTAL CANCER METASTATIC
     Dosage: 3000 MG, QD, ORAL
     Route: 048
     Dates: start: 20050824, end: 20051214
  4. CAPECITABINE(CAPECITABINE) [Suspect]
     Indication: COLORECTAL CANCER METASTATIC
     Dosage: 3000 MG, QD, ORAL
     Route: 048
     Dates: start: 20060101
  5. ZOCOR [Concomitant]
  6. ASPIRIN [Concomitant]
  7. BISOPROLOL FUMARATE [Concomitant]
  8. CONCOMITANT UNSPECIFIED DRUG (GENERIC COMPONENT(S) [Concomitant]

REACTIONS (1)
  - CORONARY ARTERY STENOSIS [None]
